FAERS Safety Report 20058362 (Version 2)
Quarter: 2021Q4

REPORT INFORMATION
  Report Type: Report from Study
  Country: US (occurrence: US)
  Receive Date: 20211111
  Receipt Date: 20211214
  Transmission Date: 20220303
  Serious: Yes (Hospitalization, Other)
  Sender: FDA-Public Use
  Company Number: US-GILEAD-2021-0555344

PATIENT
  Age: 90 Year
  Sex: Female

DRUGS (1)
  1. AZTREONAM LYSINE [Suspect]
     Active Substance: AZTREONAM LYSINE
     Indication: Pseudomonas infection
     Dosage: 75 MG, TID
     Route: 055
     Dates: start: 20190530

REACTIONS (6)
  - Pseudomonas infection [Unknown]
  - Oxygen saturation decreased [Unknown]
  - Therapy non-responder [Unknown]
  - Genotype drug resistance test positive [Unknown]
  - Circumstance or information capable of leading to medication error [Unknown]
  - Off label use [Recovered/Resolved]

NARRATIVE: CASE EVENT DATE: 20211020
